FAERS Safety Report 9368872 (Version 1)
Quarter: 2013Q2

REPORT INFORMATION
  Report Type: Spontaneous
  Country: FR (occurrence: FR)
  Receive Date: 20130626
  Receipt Date: 20130626
  Transmission Date: 20140414
  Serious: Yes (Hospitalization, Other)
  Sender: FDA-Public Use
  Company Number: FR-009507513-1306FRA007227

PATIENT
  Age: 73 Year
  Sex: Female

DRUGS (5)
  1. FOSAVANCE [Suspect]
     Indication: OSTEOPOROSIS PROPHYLAXIS
     Dosage: 1 DF, QW
     Route: 048
     Dates: end: 20100510
  2. LIPANTHYL [Suspect]
     Indication: HYPERLIPIDAEMIA
     Dosage: 1 DF, QD
     Route: 048
     Dates: end: 20100510
  3. ACTISKENAN [Suspect]
     Indication: SPINAL PAIN
     Dosage: UNK
     Route: 048
     Dates: start: 200809, end: 20100510
  4. MOVICOL [Suspect]
     Indication: CONSTIPATION
     Dosage: 1 DF, BID
     Route: 048
     Dates: start: 200809
  5. ACETAMINOPHEN [Concomitant]
     Indication: OSTEOPOROSIS PROPHYLAXIS
     Route: 048

REACTIONS (1)
  - Pancreatitis acute [Recovered/Resolved]
